FAERS Safety Report 4983640-0 (Version None)
Quarter: 2006Q2

REPORT INFORMATION
  Report Type: 
  Country: None (occurrence: None)
  Receive Date: 20060425
  Receipt Date: 20060425
  Transmission Date: 20061013
  Serious: Yes (Hospitalization)
  Sender: FDA-Public Use
  Company Number: None

PATIENT
  Age: 79 Year
  Sex: Male
  Weight: 49.8957 kg

DRUGS (7)
  1. MEGACE [Suspect]
     Indication: LUNG NEOPLASM MALIGNANT
     Dosage: 800MG/DAY
  2. MEGACE [Suspect]
     Indication: WEIGHT DECREASED
     Dosage: 800MG/DAY
  3. DOCETAXOL [Concomitant]
  4. ERBITUX [Concomitant]
  5. ADVOIR [Concomitant]
  6. COMBIVENT [Concomitant]
  7. OXYGEN [Concomitant]

REACTIONS (12)
  - BLOOD SODIUM DECREASED [None]
  - CACHEXIA [None]
  - CHEST X-RAY ABNORMAL [None]
  - CHRONIC OBSTRUCTIVE PULMONARY DISEASE [None]
  - DYSPNOEA [None]
  - EMPHYSEMA [None]
  - HAEMOGLOBIN DECREASED [None]
  - HEART RATE INCREASED [None]
  - RESPIRATORY DISTRESS [None]
  - RESPIRATORY RATE INCREASED [None]
  - RHONCHI [None]
  - WHITE BLOOD CELL COUNT INCREASED [None]
